FAERS Safety Report 14023132 (Version 2)
Quarter: 2017Q4

REPORT INFORMATION
  Report Type: Spontaneous
  Country: JP (occurrence: JP)
  Receive Date: 20170929
  Receipt Date: 20171107
  Transmission Date: 20180321
  Serious: Yes (Death)
  Sender: FDA-Public Use
  Company Number: JP-JNJFOC-20170928438

PATIENT
  Age: 72 Year
  Sex: Male

DRUGS (3)
  1. ZYTIGA [Suspect]
     Active Substance: ABIRATERONE ACETATE
     Indication: HORMONE-REFRACTORY PROSTATE CANCER
     Route: 048
     Dates: start: 20170906
  2. PREDNISOLONE. [Suspect]
     Active Substance: PREDNISOLONE
     Indication: HORMONE-REFRACTORY PROSTATE CANCER
     Route: 048
     Dates: start: 20170906
  3. ZYTIGA [Suspect]
     Active Substance: ABIRATERONE ACETATE
     Indication: HORMONE-REFRACTORY PROSTATE CANCER
     Route: 048

REACTIONS (3)
  - Prescribed underdose [Unknown]
  - Off label use [Unknown]
  - Cerebral haemorrhage [Fatal]

NARRATIVE: CASE EVENT DATE: 20170915
